FAERS Safety Report 13357889 (Version 1)
Quarter: 2017Q1

REPORT INFORMATION
  Report Type: Spontaneous
  Country: US (occurrence: US)
  Receive Date: 20170322
  Receipt Date: 20170322
  Transmission Date: 20170429
  Serious: Yes (Hospitalization, Other)
  Sender: FDA-Public Use
  Company Number: US-ZYDUS-014367

PATIENT
  Age: 73 Year
  Sex: Female

DRUGS (3)
  1. BUPROPION/BUPROPION HYDROCHLORIDE [Suspect]
     Active Substance: BUPROPION HYDROCHLORIDE
     Indication: PRODUCT USED FOR UNKNOWN INDICATION
     Route: 048
  2. HALOPERIDOL. [Suspect]
     Active Substance: HALOPERIDOL
     Indication: DELIRIUM
     Dosage: TOTAL OF 6MG IN A 24 HOURS PERIOD
     Route: 042
  3. DIAZEPAM. [Suspect]
     Active Substance: DIAZEPAM
     Indication: PRODUCT USED FOR UNKNOWN INDICATION
     Route: 048

REACTIONS (14)
  - Depressed level of consciousness [Unknown]
  - Failure to thrive [Unknown]
  - Hypokinesia [Unknown]
  - Depressed mood [Unknown]
  - Dementia [Unknown]
  - Neurodegenerative disorder [Unknown]
  - Mental status changes [Unknown]
  - Hallucination [Unknown]
  - Delirium [Unknown]
  - Agitation [Unknown]
  - Mutism [Unknown]
  - Waxy flexibility [Unknown]
  - Cognitive disorder [Unknown]
  - Parkinsonism [Unknown]
